FAERS Safety Report 10220589 (Version 1)
Quarter: 2014Q2

REPORT INFORMATION
  Report Type: Spontaneous
  Country: US (occurrence: None)
  Receive Date: 20140604
  Receipt Date: 20140604
  Transmission Date: 20141212
  Serious: Yes (Death)
  Sender: FDA-Public Use
  Company Number: UNT-2014-000983

PATIENT
  Age: 60 Year
  Sex: Female

DRUGS (1)
  1. REMODULIN (TREPROSTINIL SODIUM) INJECTION, 10 MG/ML [Suspect]
     Indication: PULMONARY ARTERIAL HYPERTENSION
     Route: 058
     Dates: start: 20140307, end: 20140429

REACTIONS (1)
  - Death [None]
